FAERS Safety Report 18079164 (Version 4)
Quarter: 2020Q4

REPORT INFORMATION
  Report Type: Spontaneous
  Country: US (occurrence: US)
  Receive Date: 20200728
  Receipt Date: 20201104
  Transmission Date: 20210113
  Serious: Yes (Death, Hospitalization, Other)
  Sender: FDA-Public Use
  Company Number: US-AKCEA THERAPEUTICS-2020IS001319

PATIENT
  Age: 68 Year
  Sex: Female

DRUGS (14)
  1. TEGSEDI [Suspect]
     Active Substance: INOTERSEN SODIUM
     Indication: POLYNEUROPATHY
     Route: 058
  2. ELIQUIS [Concomitant]
     Active Substance: APIXABAN
  3. METOLAZONE. [Concomitant]
     Active Substance: METOLAZONE
  4. LISINOPRIL. [Concomitant]
     Active Substance: LISINOPRIL
  5. SPIRONOLACTONE. [Concomitant]
     Active Substance: SPIRONOLACTONE
  6. ISSD (INTEGRATED SYRINGE SAFETY DEVICE) [Suspect]
     Active Substance: DEVICE
  7. SIMVASTATIN. [Concomitant]
     Active Substance: SIMVASTATIN
  8. TEGSEDI [Suspect]
     Active Substance: INOTERSEN SODIUM
     Indication: HEREDITARY NEUROPATHIC AMYLOIDOSIS
     Route: 058
  9. TEGSEDI [Suspect]
     Active Substance: INOTERSEN SODIUM
  10. ESTRADIOL. [Concomitant]
     Active Substance: ESTRADIOL
  11. TORSEMIDE. [Concomitant]
     Active Substance: TORSEMIDE
  12. NAPROXEN. [Concomitant]
     Active Substance: NAPROXEN
  13. METOPROLOL TARTRATE. [Concomitant]
     Active Substance: METOPROLOL TARTRATE
  14. METFORMIN HCL [Concomitant]
     Active Substance: METFORMIN HYDROCHLORIDE

REACTIONS (4)
  - Lethargy [Recovered/Resolved]
  - Septic shock [Fatal]
  - Cardiac pacemaker insertion [Recovered/Resolved]
  - Fatigue [Recovered/Resolved]

NARRATIVE: CASE EVENT DATE: 20201003
